FAERS Safety Report 19086643 (Version 1)
Quarter: 2021Q2

REPORT INFORMATION
  Report Type: Spontaneous
  Country: US (occurrence: US)
  Receive Date: 20210401
  Receipt Date: 20210401
  Transmission Date: 20210717
  Serious: No
  Sender: FDA-Public Use
  Company Number: None

PATIENT
  Age: 51 Year
  Sex: Male
  Weight: 108.86 kg

DRUGS (2)
  1. ALBUTEROL. [Suspect]
     Active Substance: ALBUTEROL
     Indication: ASTHMA
     Dosage: ?          OTHER DOSE:ALBUTEROL;OTHER FREQUENCY:MDI;?
  2. PROAIR HFA [Suspect]
     Active Substance: ALBUTEROL SULFATE
     Indication: ASTHMA
     Dosage: ?          OTHER DOSE:PRO?AIR;OTHER FREQUENCY:HOI;OTHER ROUTE:2 PUFFS Q 4 HOURS?

REACTIONS (1)
  - Treatment failure [None]
